FAERS Safety Report 7622783-X (Version None)
Quarter: 2011Q3

REPORT INFORMATION
  Report Type: 
  Country: None (occurrence: None)
  Receive Date: 20110719
  Receipt Date: 20110719
  Transmission Date: 20111222
  Serious: No
  Sender: FDA-Public Use
  Company Number: None

PATIENT
  Sex: Male
  Weight: 76.2043 kg

DRUGS (3)
  1. ZESTOROTIC [Concomitant]
  2. METFORMIN HCL [Suspect]
     Indication: TYPE 2 DIABETES MELLITUS
     Dosage: INCREASED EVERY 6 MO. 1 DAILY ORAL
     Route: 048
     Dates: start: 20090101, end: 20110601
  3. LIPITOR [Concomitant]

REACTIONS (2)
  - DIZZINESS [None]
  - MUSCULAR WEAKNESS [None]
